FAERS Safety Report 15989082 (Version 3)
Quarter: 2020Q2

REPORT INFORMATION
  Report Type: Report from Study
  Country: CN (occurrence: CN)
  Receive Date: 20190221
  Receipt Date: 20200612
  Transmission Date: 20200713
  Serious: Yes (Death)
  Sender: FDA-Public Use
  Company Number: CN-ROCHE-2266634

PATIENT
  Age: 52 Year
  Sex: Female
  Weight: 55 kg

DRUGS (12)
  1. DOCETAXEL. [Suspect]
     Active Substance: DOCETAXEL
     Indication: BREAST CANCER METASTATIC
     Dosage: DATE OF MOST RECENT DOSE OF 115 MG DOCETAXEL PRIOR TO SAE ONSET 17/AUG /2017 Q3S
     Route: 042
     Dates: start: 20170706
  2. FERROUS SUCCINATE [Concomitant]
     Active Substance: FERROUS SUCCINATE
     Indication: ANAEMIA
     Route: 065
     Dates: start: 20170906
  3. POTASSIUM CHLORIDE. [Concomitant]
     Active Substance: POTASSIUM CHLORIDE
     Indication: VOMITING
     Route: 065
     Dates: start: 20190204, end: 20190204
  4. TRASTUZUMAB. [Suspect]
     Active Substance: TRASTUZUMAB
     Dosage: 4TH CYCLE OF MAINTENANCE DOSE. ?DATE OF MOST RECENT DOSE OF TRASTUZUMAB PRIOR TO SAE ONSET 24/JAN/20
     Route: 042
     Dates: start: 20170906
  5. EPINEPHRINE. [Concomitant]
     Active Substance: EPINEPHRINE
     Indication: RESPIRATORY FAILURE
     Route: 065
     Dates: start: 20190205, end: 20190205
  6. TRASTUZUMAB. [Suspect]
     Active Substance: TRASTUZUMAB
     Indication: BREAST CANCER METASTATIC
     Dosage: AS LOADING DOSE
     Route: 042
     Dates: start: 20170706, end: 20170706
  7. PERTUZUMAB. [Suspect]
     Active Substance: PERTUZUMAB
     Dosage: MAINTENACE DOSE
     Route: 042
  8. PERTUZUMAB. [Suspect]
     Active Substance: PERTUZUMAB
     Indication: BREAST CANCER METASTATIC
     Dosage: LOADING DOSE (FOR CYCLE 1)
     Route: 042
     Dates: start: 20170706, end: 20170706
  9. TRASTUZUMAB. [Suspect]
     Active Substance: TRASTUZUMAB
     Dosage: MAINTENANCE DOSE. ?DATE OF MOST RECENT DOSE OF TRASTUZUMAB PRIOR TO SAE ONSET 24/JAN/2019 Q3S
     Route: 042
  10. AMOXICILLIN;CLAVULANIC ACID [Concomitant]
     Active Substance: AMOXICILLIN\CLAVULANIC ACID
     Route: 065
     Dates: start: 20190204, end: 20190205
  11. PERTUZUMAB. [Suspect]
     Active Substance: PERTUZUMAB
     Dosage: 4TH CYCLE OF MAINTENANCE DOSE.?DATE OF MOST RECENT DOSE OF BLINDED PERTUZUMAB PRIOR TO SAE ONSET: 24
     Route: 042
     Dates: start: 20170906
  12. METHYLPREDNISOLONE SODIUM SUCCINATE. [Concomitant]
     Active Substance: METHYLPREDNISOLONE SODIUM SUCCINATE
     Route: 065
     Dates: start: 20190205, end: 20190205

REACTIONS (1)
  - Pneumonia [Fatal]

NARRATIVE: CASE EVENT DATE: 20190204
